FAERS Safety Report 4800015-5 (Version None)
Quarter: 2005Q4

REPORT INFORMATION
  Report Type: 
  Country: None (occurrence: None)
  Receive Date: 20051017
  Receipt Date: 20051003
  Transmission Date: 20060501
  Serious: Yes (Other)
  Sender: FDA-Public Use
  Company Number: 2005GB01932

PATIENT
  Age: 93 Year
  Sex: Male

DRUGS (4)
  1. ATENOLOL [Suspect]
     Indication: PAIN
     Route: 048
     Dates: start: 20050614, end: 20050713
  2. ASPIRIN [Concomitant]
     Indication: PAIN
     Route: 048
     Dates: start: 20050601
  3. SIMVASTATIN [Concomitant]
     Indication: PAIN
     Route: 048
     Dates: start: 20050601
  4. GLYCERYL TRINITRATE [Concomitant]
     Indication: PAIN
     Route: 060
     Dates: start: 20050601

REACTIONS (3)
  - BLOOD CREATININE INCREASED [None]
  - BLOOD SODIUM DECREASED [None]
  - RENAL IMPAIRMENT [None]
